FAERS Safety Report 13358995 (Version 1)
Quarter: 2017Q1

REPORT INFORMATION
  Report Type: Spontaneous
  Country: US (occurrence: US)
  Receive Date: 20170322
  Receipt Date: 20170322
  Transmission Date: 20170429
  Serious: No
  Sender: FDA-Public Use
  Company Number: US-BAYER-2017-054501

PATIENT
  Age: 55 Year
  Sex: Female

DRUGS (2)
  1. MIRALAX [Suspect]
     Active Substance: POLYETHYLENE GLYCOL 3350
     Dosage: UNK
  2. ENEMA CASEN [Concomitant]

REACTIONS (3)
  - Epigastric discomfort [Unknown]
  - Abdominal discomfort [Unknown]
  - Constipation [Unknown]
